FAERS Safety Report 8569353-7 (Version None)
Quarter: 2012Q3

REPORT INFORMATION
  Report Type: 
  Country: None (occurrence: None)
  Receive Date: 20120803
  Receipt Date: 20120427
  Transmission Date: 20120928
  Serious: No
  Sender: FDA-Public Use
  Company Number: US-ABBOTT-12P-163-0929938-00

PATIENT
  Sex: Male
  Weight: 77.18 kg

DRUGS (5)
  1. NIASPAN [Suspect]
     Dosage: AT BEDTIME
     Route: 048
  2. LISINOPRIL [Concomitant]
     Indication: PRODUCT USED FOR UNKNOWN INDICATION
     Dosage: 5MG DAILY
     Route: 048
  3. NIASPAN [Suspect]
     Indication: PRODUCT USED FOR UNKNOWN INDICATION
     Dosage: AT BEDTIME
     Route: 048
  4. NIASPAN [Suspect]
     Dosage: AT BEDTIME
     Route: 048
  5. ASPIRIN [Concomitant]
     Indication: PRODUCT USED FOR UNKNOWN INDICATION
     Dosage: 81MG EVERY MORNING
     Route: 048

REACTIONS (2)
  - ASTHENOPIA [None]
  - FLUSHING [None]
